FAERS Safety Report 23888215 (Version 1)
Quarter: 2024Q2

REPORT INFORMATION
  Report Type: Other
  Country: FR (occurrence: FR)
  Receive Date: 20240523
  Receipt Date: 20240523
  Transmission Date: 20240716
  Serious: Yes (Hospitalization)
  Sender: FDA-Public Use
  Company Number: None

PATIENT

DRUGS (3)
  1. METFORMIN [Suspect]
     Active Substance: METFORMIN HYDROCHLORIDE
     Indication: Diabetes mellitus
     Dosage: 1.5 GRAM, QD
     Route: 048
     Dates: start: 202309, end: 20240204
  2. ATORVASTATIN [Suspect]
     Active Substance: ATORVASTATIN
     Indication: Cerebrovascular accident
     Dosage: 80 MILLIGRAM, QD
     Route: 048
     Dates: start: 202401, end: 20240204
  3. PERINDOPRIL [Suspect]
     Active Substance: PERINDOPRIL
     Indication: Cerebrovascular accident
     Dosage: 2 MILLIGRAM, QD
     Route: 048
     Dates: start: 20240111, end: 20240204

REACTIONS (1)
  - Pancreatitis acute [Recovered/Resolved]

NARRATIVE: CASE EVENT DATE: 20240204
